FAERS Safety Report 4589946-1 (Version None)
Quarter: 2005Q1

REPORT INFORMATION
  Report Type: 
  Country: None (occurrence: None)
  Receive Date: 20050125
  Receipt Date: 20040907
  Transmission Date: 20050727
  Serious: No
  Sender: FDA-Public Use
  Company Number: USA040671046

PATIENT
  Age: 51 Year
  Sex: Female
  Weight: 48 kg

DRUGS (7)
  1. FORTEO [Suspect]
     Indication: OSTEOPOROSIS
     Dosage: 20 UG DAY
     Dates: start: 20040615
  2. ACYCLOVIR [Concomitant]
  3. CALCIUM GLUCONATE [Concomitant]
  4. CLARINEX [Concomitant]
  5. SYNTHROID [Concomitant]
  6. PRAVACHOL [Concomitant]
  7. MULTI-VITAMIN [Concomitant]

REACTIONS (3)
  - ARTHRALGIA [None]
  - BREAST TENDERNESS [None]
  - FATIGUE [None]
